FAERS Safety Report 8233222-2 (Version None)
Quarter: 2012Q1

REPORT INFORMATION
  Report Type: 
  Country: None (occurrence: None)
  Receive Date: 20120326
  Receipt Date: 20120320
  Transmission Date: 20120608
  Serious: No
  Sender: FDA-Public Use
  Company Number: US-PFIZER INC-2012038984

PATIENT
  Sex: Female
  Weight: 73.016 kg

DRUGS (9)
  1. GLUCOSAMINE [Concomitant]
     Dosage: UNK
  2. CALCIUM WITH VITAMIN D [Concomitant]
     Dosage: UNK
  3. M.V.I. [Concomitant]
     Dosage: UNK
  4. CELEBREX [Suspect]
     Indication: ARTHRITIS
     Dosage: 200 MG, 1X/DAY
     Route: 048
     Dates: start: 20010101
  5. CITALOPRAM [Concomitant]
     Dosage: 20 MG, UNK
  6. CELEBREX [Suspect]
     Dosage: 200 MG, 2X/DAY
     Route: 048
     Dates: start: 20030101, end: 20120221
  7. LISINOPRIL AND HYDROCHLOROTHIAZIDE [Concomitant]
     Dosage: 12.5/20 MG, 1X/DAY
  8. LEVOTHYROXINE [Concomitant]
     Dosage: UNK
  9. FISH OIL [Concomitant]
     Dosage: UNK

REACTIONS (7)
  - BACK PAIN [None]
  - PAIN IN EXTREMITY [None]
  - DISCOMFORT [None]
  - ARTHRITIS [None]
  - MALAISE [None]
  - OEDEMA PERIPHERAL [None]
  - DIARRHOEA [None]
